FAERS Safety Report 5822248-1 (Version None)
Quarter: 2008Q3

REPORT INFORMATION
  Report Type: 
  Country: None (occurrence: None)
  Receive Date: 20080723
  Receipt Date: 20080723
  Transmission Date: 20090109
  Serious: No
  Sender: FDA-Public Use
  Company Number: None

PATIENT
  Age: 54 Year
  Sex: Male
  Weight: 75.7507 kg

DRUGS (1)
  1. LEVAQUIN [Suspect]
     Indication: PROSTATE INFECTION
     Dosage: 500 MG 1 PER DAY FOR 18 D PO
     Route: 048
     Dates: start: 20070602, end: 20070620

REACTIONS (6)
  - CHONDROPATHY [None]
  - HEADACHE [None]
  - MYALGIA [None]
  - RASH [None]
  - SYNCOPE [None]
  - TENDON PAIN [None]
